FAERS Safety Report 6752761-4 (Version None)
Quarter: 2010Q2

REPORT INFORMATION
  Report Type: 
  Country: None (occurrence: None)
  Receive Date: 20100602
  Receipt Date: 20100602
  Transmission Date: 20101027
  Serious: Yes (Hospitalization)
  Sender: FDA-Public Use
  Company Number: None

PATIENT
  Sex: Male
  Weight: 107.5 kg

DRUGS (6)
  1. CYCLOPHOSPHAMIDE [Suspect]
     Dosage: 4640 MG
  2. CYTARABINE [Suspect]
     Dosage: 6976 MG
  3. MERCAPTOPURINE [Suspect]
     Dosage: 4000 MG
  4. METHOTREXATE [Suspect]
     Dosage: 60 MG
  5. PEG-L ASPARAGINASE (K-H) [Suspect]
     Dosage: 11600 MG
  6. VINCRISTINE SULFATE [Suspect]
     Dosage: 6 MG

REACTIONS (19)
  - ABDOMINAL PAIN LOWER [None]
  - ANAEMIA [None]
  - BLOOD CHOLESTEROL INCREASED [None]
  - BLOOD TRIGLYCERIDES INCREASED [None]
  - CEREBRAL INFARCTION [None]
  - DEMYELINATION [None]
  - DRUG TOXICITY [None]
  - DYSARTHRIA [None]
  - ENCEPHALITIS [None]
  - FALL [None]
  - HYDROCEPHALUS [None]
  - HYPERLIPIDAEMIA [None]
  - HYPOPHAGIA [None]
  - MUSCULAR WEAKNESS [None]
  - NEUTROPHIL COUNT DECREASED [None]
  - PYREXIA [None]
  - TACHYCARDIA [None]
  - THROMBOCYTOPENIA [None]
  - VIRAL INFECTION [None]
